FAERS Safety Report 18250431 (Version 1)
Quarter: 2020Q3

REPORT INFORMATION
  Report Type: Spontaneous
  Country: US (occurrence: US)
  Receive Date: 20200909
  Receipt Date: 20200909
  Transmission Date: 20201103
  Serious: Yes (Death, Hospitalization)
  Sender: FDA-Public Use
  Company Number: US-JNJFOC-A-NJ2020-207387

PATIENT
  Age: 76 Year
  Sex: Female
  Weight: 65.76 kg

DRUGS (6)
  1. APIXABAN [Concomitant]
     Active Substance: APIXABAN
  2. FUROSEMIDE. [Concomitant]
     Active Substance: FUROSEMIDE
  3. UPTRAVI [Suspect]
     Active Substance: SELEXIPAG
     Dosage: 1000 MCG, BID
     Route: 048
  4. UPTRAVI [Suspect]
     Active Substance: SELEXIPAG
     Indication: PULMONARY ARTERIAL HYPERTENSION
     Dosage: 800 MCG, BID
     Route: 048
  5. SILDENAFIL. [Concomitant]
     Active Substance: SILDENAFIL
  6. LEVOTHYROXINE. [Concomitant]
     Active Substance: LEVOTHYROXINE

REACTIONS (9)
  - Fluid overload [Unknown]
  - Insomnia [Unknown]
  - Contusion [Unknown]
  - Circulatory collapse [Fatal]
  - Oedema peripheral [Unknown]
  - Pain in extremity [Unknown]
  - Dyspnoea [Unknown]
  - Disease progression [Unknown]
  - Fall [Unknown]

NARRATIVE: CASE EVENT DATE: 202007
